FAERS Safety Report 10356890 (Version 1)
Quarter: 2014Q3

REPORT INFORMATION
  Report Type: Spontaneous
  Country: VE (occurrence: VE)
  Receive Date: 20140801
  Receipt Date: 20140801
  Transmission Date: 20150326
  Serious: Yes (Hospitalization, Other)
  Sender: FDA-Public Use
  Company Number: PHHY2014VE094016

PATIENT
  Age: 15 Year
  Sex: Female

DRUGS (3)
  1. FOLIC ACID. [Concomitant]
     Active Substance: FOLIC ACID
     Dosage: UNK UKN, UNK
  2. HYDREA [Concomitant]
     Active Substance: HYDROXYUREA
     Dosage: UNK UKN, UNK
  3. CATAFLAM [Suspect]
     Active Substance: DICLOFENAC POTASSIUM
     Indication: PAIN
     Dosage: 1 UKN, Q8H
     Route: 048

REACTIONS (5)
  - Sickle cell anaemia [Recovering/Resolving]
  - Bone cyst [Recovering/Resolving]
  - Pain in extremity [Recovering/Resolving]
  - Purulent discharge [Recovering/Resolving]
  - Arthralgia [Recovering/Resolving]

NARRATIVE: CASE EVENT DATE: 20140707
